FAERS Safety Report 4928861-8 (Version None)
Quarter: 2006Q1

REPORT INFORMATION
  Report Type: 
  Country: None (occurrence: None)
  Receive Date: 20060223
  Receipt Date: 20060210
  Transmission Date: 20060701
  Serious: Yes (Hospitalization)
  Sender: FDA-Public Use
  Company Number: 2004032018

PATIENT
  Age: 47 Year
  Sex: Male
  Weight: 85.7298 kg

DRUGS (5)
  1. LIPITOR [Suspect]
     Indication: CARDIOVASCULAR DISORDER
     Dosage: 20 MG(20 MG, 1 IN 1 D)
     Dates: start: 19980101, end: 20020701
  2. TRICOR [Suspect]
     Indication: ILL-DEFINED DISORDER
  3. NIACIN [Suspect]
     Indication: ILL-DEFINED DISORDER
  4. ASPIRIN [Concomitant]
  5. CENTRUM (MINERALS NOS, VITAMINS NOS) [Concomitant]

REACTIONS (37)
  - ALPHA 1 FOETOPROTEIN INCREASED [None]
  - AUTOIMMUNE HEPATITIS [None]
  - BACTERIA URINE IDENTIFIED [None]
  - BENIGN PROSTATIC HYPERPLASIA [None]
  - BLOOD BICARBONATE INCREASED [None]
  - BLOOD CHLORIDE INCREASED [None]
  - BLOOD CREATINE INCREASED [None]
  - BLOOD CREATINE PHOSPHOKINASE INCREASED [None]
  - BLOOD GLUCOSE DECREASED [None]
  - BLOOD GLUCOSE INCREASED [None]
  - BLOOD PHOSPHORUS DECREASED [None]
  - BLOOD SODIUM INCREASED [None]
  - BLOOD UREA INCREASED [None]
  - BLOOD URINE PRESENT [None]
  - DIZZINESS [None]
  - DRUG TOXICITY [None]
  - EMOTIONAL DISORDER [None]
  - FOOD POISONING [None]
  - GALLBLADDER DISORDER [None]
  - GASTROOESOPHAGEAL REFLUX DISEASE [None]
  - HAEMATOCRIT DECREASED [None]
  - HAEMOGLOBIN DECREASED [None]
  - HEPATIC CIRRHOSIS [None]
  - HEPATIC FAILURE [None]
  - HEPATITIS TOXIC [None]
  - HYPERTENSION [None]
  - MENTAL DISABILITY [None]
  - MUSCLE SPASMS [None]
  - ORAL INTAKE REDUCED [None]
  - PAIN [None]
  - RASH [None]
  - RED BLOOD CELL COUNT INCREASED [None]
  - RENAL CYST [None]
  - RENAL DISORDER [None]
  - SINUS TACHYCARDIA [None]
  - WEIGHT DECREASED [None]
  - WHITE BLOOD CELLS URINE POSITIVE [None]
